FAERS Safety Report 17616506 (Version 1)
Quarter: 2020Q2

REPORT INFORMATION
  Report Type: Spontaneous
  Country: US (occurrence: US)
  Receive Date: 20200402
  Receipt Date: 20200402
  Transmission Date: 20200713
  Serious: No
  Sender: FDA-Public Use
  Company Number: None

PATIENT
  Age: 70 Year
  Sex: Female
  Weight: 67.64 kg

DRUGS (17)
  1. VITAMIN B COMPLEX C, ORAL [Concomitant]
  2. LEVOTHYROXINE SODIUM 100MCG, ORAL [Concomitant]
  3. BREO ELLIPTA 100 - 25 MCG, INHALER [Concomitant]
  4. ATORVASTATIN CALCIUM 10MG, ORAL [Concomitant]
  5. SETRALINE 100MG, ORAL [Concomitant]
  6. CAPECITABINE. [Suspect]
     Active Substance: CAPECITABINE
     Indication: BREAST CANCER
     Route: 048
     Dates: start: 20200317, end: 20200402
  7. XGEVA 120 MG/1.7 ML, ORAL [Concomitant]
  8. ALBUTEROL SULFATE HFA, 108 MG [Concomitant]
  9. ATIVAN 1MG, ORAL [Concomitant]
  10. NITROGLYCERIN ER, 2.5 MG, ORAL [Concomitant]
  11. CALCIUM CITRATE, ORAL [Concomitant]
  12. PANTOPRAZOLE 20 MG, ORAL [Concomitant]
  13. ONDANSETRON, 4MG, ORAL [Concomitant]
  14. IPRATROPIUM-ALBUTEROL 0.5-2.5 MG [Concomitant]
  15. LOSARTAN 100MG , ORAL [Concomitant]
  16. INCRUSE ELLIPTA 62.5 MCG, INHALER [Concomitant]
  17. ASPIRIN 81 MG, ORAL [Concomitant]

REACTIONS (1)
  - Hospice care [None]

NARRATIVE: CASE EVENT DATE: 20200402
